FAERS Safety Report 19075023 (Version 1)
Quarter: 2021Q1

REPORT INFORMATION
  Report Type: Spontaneous
  Country: US (occurrence: US)
  Receive Date: 20210330
  Receipt Date: 20210330
  Transmission Date: 20210420
  Serious: No
  Sender: FDA-Public Use
  Company Number: US-ROCHE-2679692

PATIENT
  Age: 64 Year
  Sex: Male
  Weight: 86.26 kg

DRUGS (16)
  1. MAGNESIUM [Concomitant]
     Active Substance: MAGNESIUM
     Route: 048
  2. VITAMIN A [Concomitant]
     Active Substance: VITAMIN A
  3. FLUOXETINE HYDROCHLORIDE. [Concomitant]
     Active Substance: FLUOXETINE HYDROCHLORIDE
     Route: 048
  4. HYDROXYZINE [Concomitant]
     Active Substance: HYDROXYZINE HYDROCHLORIDE
     Route: 048
  5. VITAMIN B12 [Concomitant]
     Active Substance: CYANOCOBALAMIN
     Route: 058
  6. FAMOTIDINE. [Concomitant]
     Active Substance: FAMOTIDINE
     Route: 048
  7. PREGABALIN. [Concomitant]
     Active Substance: PREGABALIN
     Route: 048
  8. DOCUSATE SODIUM. [Concomitant]
     Active Substance: DOCUSATE SODIUM
     Route: 048
  9. ERGOCALCIFEROL. [Concomitant]
     Active Substance: ERGOCALCIFEROL
     Route: 048
  10. ERIVEDGE [Suspect]
     Active Substance: VISMODEGIB
     Indication: BASAL CELL CARCINOMA
     Route: 048
     Dates: start: 20200519
  11. LEVOTHYROXINE. [Concomitant]
     Active Substance: LEVOTHYROXINE
     Route: 048
  12. MIRTAZAPINE. [Concomitant]
     Active Substance: MIRTAZAPINE
     Route: 048
  13. ATORVASTATIN [Concomitant]
     Active Substance: ATORVASTATIN
  14. TEGRETOL [Concomitant]
     Active Substance: CARBAMAZEPINE
     Route: 048
  15. BUPRENORPHINE. [Concomitant]
     Active Substance: BUPRENORPHINE
     Route: 058
  16. DULOXETINE HYDROCHLORIDE. [Concomitant]
     Active Substance: DULOXETINE HYDROCHLORIDE

REACTIONS (11)
  - Fall [Unknown]
  - Amnesia [Unknown]
  - Muscular weakness [Not Recovered/Not Resolved]
  - Arthralgia [Not Recovered/Not Resolved]
  - Constipation [Recovered/Resolved]
  - Ageusia [Unknown]
  - Dysarthria [Unknown]
  - Fatigue [Not Recovered/Not Resolved]
  - Dizziness [Not Recovered/Not Resolved]
  - Feeling abnormal [Not Recovered/Not Resolved]
  - Decreased appetite [Not Recovered/Not Resolved]

NARRATIVE: CASE EVENT DATE: 202008
